FAERS Safety Report 23874000 (Version 1)
Quarter: 2024Q2

REPORT INFORMATION
  Report Type: Spontaneous
  Country: CN (occurrence: CN)
  Receive Date: 20240520
  Receipt Date: 20240520
  Transmission Date: 20240716
  Serious: Yes (Hospitalization, Other)
  Sender: FDA-Public Use
  Company Number: CN-EPICPHARMA-CN-2024EPCLIT00512

PATIENT
  Age: 14 Year
  Sex: Female
  Weight: 29 kg

DRUGS (4)
  1. CARBOPLATIN [Suspect]
     Active Substance: CARBOPLATIN
     Indication: CNS germinoma
     Route: 065
  2. ETOPOSIDE [Suspect]
     Active Substance: ETOPOSIDE
     Indication: CNS germinoma
     Route: 065
  3. MEROPENEM [Concomitant]
     Active Substance: MEROPENEM
     Dosage: 1.5 G/D X 14 D
     Route: 042
  4. FLUCONAZOLE [Concomitant]
     Active Substance: FLUCONAZOLE
     Dosage: 100 ML/D X 13 D
     Route: 065

REACTIONS (3)
  - Myelosuppression [Recovered/Resolved]
  - Immunosuppression [Recovered/Resolved]
  - Haemophagocytic lymphohistiocytosis [Recovered/Resolved]
